FAERS Safety Report 8594552-8 (Version None)
Quarter: 2012Q3

REPORT INFORMATION
  Report Type: 
  Country: None (occurrence: None)
  Receive Date: 20120815
  Receipt Date: 20120810
  Transmission Date: 20120928
  Serious: Yes (Death)
  Sender: FDA-Public Use
  Company Number: CA-ELI_LILLY_AND_COMPANY-CA201208003734

PATIENT
  Age: 52 Year
  Sex: Male

DRUGS (3)
  1. ZYPREXA [Suspect]
     Dosage: 7.5 MG, TID
     Dates: start: 20010101
  2. ZYPREXA [Suspect]
     Dosage: 30 MG, UNK
  3. LUVOX [Concomitant]

REACTIONS (3)
  - OVERDOSE [None]
  - MYOCARDIAL INFARCTION [None]
  - COMPLETED SUICIDE [None]
